FAERS Safety Report 20751085 (Version 1)
Quarter: 2022Q2

REPORT INFORMATION
  Report Type: Spontaneous
  Country: US (occurrence: US)
  Receive Date: 20220426
  Receipt Date: 20220426
  Transmission Date: 20220721
  Serious: Yes (Hospitalization)
  Sender: FDA-Public Use
  Company Number: US-PFIZER INC-202200609499

PATIENT
  Age: 37 Year
  Sex: Male

DRUGS (3)
  1. GABAPENTIN [Suspect]
     Active Substance: GABAPENTIN
     Dosage: 2 TABS 3X DAILY
  2. HYDROXYZINE PAMOATE [Suspect]
     Active Substance: HYDROXYZINE PAMOATE
     Dosage: 1 TAB EVERY 6 HOURS AS NEEDED
  3. LATANOPROST [Suspect]
     Active Substance: LATANOPROST
     Dosage: 1 DROP ONCE DAILY INTO LT EYE

REACTIONS (7)
  - Eosinophil count increased [Unknown]
  - Lymphocyte count increased [Unknown]
  - Blood creatinine decreased [Unknown]
  - Aspartate aminotransferase decreased [Unknown]
  - Blood glucose increased [Unknown]
  - Glycosylated haemoglobin increased [Unknown]
  - Hepatitis C antibody positive [Unknown]
